FAERS Safety Report 9948312 (Version 2)
Quarter: 2014Q1

REPORT INFORMATION
  Report Type: Report from Study
  Country: US (occurrence: US)
  Receive Date: 20140303
  Receipt Date: 20140304
  Transmission Date: 20141002
  Serious: Yes (Death)
  Sender: FDA-Public Use
  Company Number: US-ROCHE-1358968

PATIENT
  Age: 88 Year
  Sex: Female

DRUGS (2)
  1. XELODA [Suspect]
     Indication: VULVAL CANCER
     Dosage: 2 TABLETS, 9 DAYS ON
     Route: 065
  2. XELODA [Suspect]
     Dosage: 1 TABLET FOR 9 DAYS
     Route: 065

REACTIONS (1)
  - Death [Fatal]
